FAERS Safety Report 4861198-4 (Version None)
Quarter: 2005Q4

REPORT INFORMATION
  Report Type: 
  Country: None (occurrence: None)
  Receive Date: 20051216
  Receipt Date: 20051130
  Transmission Date: 20060501
  Serious: Yes (Other)
  Sender: FDA-Public Use
  Company Number: 200514179GDS

PATIENT
  Age: 53 Year
  Sex: Male

DRUGS (3)
  1. CIPROFLOXACIN HYDROCHLORIDE [Suspect]
     Indication: EAR INFECTION
  2. CIPROFLOXACIN HYDROCHLORIDE [Suspect]
     Indication: EAR INFECTION
  3. CORTISONE ACETATE TAB [Concomitant]

REACTIONS (3)
  - PALPITATIONS [None]
  - SUPRAVENTRICULAR EXTRASYSTOLES [None]
  - VENTRICULAR EXTRASYSTOLES [None]
